FAERS Safety Report 5816709-9 (Version None)
Quarter: 2008Q3

REPORT INFORMATION
  Report Type: 
  Country: None (occurrence: None)
  Receive Date: 20080721
  Receipt Date: 20080711
  Transmission Date: 20090109
  Serious: Yes (Other)
  Sender: FDA-Public Use
  Company Number: FR-PFIZER INC-2008057907

PATIENT
  Age: 27 Year
  Sex: Male

DRUGS (1)
  1. CHANTIX [Suspect]
     Indication: SMOKING CESSATION THERAPY

REACTIONS (5)
  - ABNORMAL DREAMS [None]
  - AGGRESSION [None]
  - FATIGUE [None]
  - NERVOUSNESS [None]
  - PRIAPISM [None]
